FAERS Safety Report 25232606 (Version 1)
Quarter: 2025Q2

REPORT INFORMATION
  Report Type: Spontaneous
  Country: US (occurrence: US)
  Receive Date: 20250424
  Receipt Date: 20250424
  Transmission Date: 20250717
  Serious: Yes (Life-Threatening, Hospitalization)
  Sender: ENDO
  Company Number: US-ENDO USA, INC.-2025-001078

PATIENT
  Age: 28 Year
  Sex: Female

DRUGS (1)
  1. KETALAR [Suspect]
     Active Substance: KETAMINE HYDROCHLORIDE
     Indication: Substance use
     Route: 065

REACTIONS (5)
  - Liver abscess [Not Recovered/Not Resolved]
  - Cholangitis [Not Recovered/Not Resolved]
  - Bile duct stenosis [Not Recovered/Not Resolved]
  - Cholestatic liver injury [Not Recovered/Not Resolved]
  - Drug abuse [Unknown]
